FAERS Safety Report 20421948 (Version 1)
Quarter: 2022Q1

REPORT INFORMATION
  Report Type: Spontaneous
  Country: US (occurrence: None)
  Receive Date: 20220203
  Receipt Date: 20220203
  Transmission Date: 20220423
  Serious: Yes (Death)
  Sender: FDA-Public Use
  Company Number: None

PATIENT
  Age: 84 Year
  Sex: Male

DRUGS (1)
  1. CAPECITABINE [Suspect]
     Active Substance: CAPECITABINE
     Indication: Anal cancer
     Dosage: 1500MG ?TAKE 3 TABLETS (1500MG) BY MOUTH TWICE DAILY MONDAY THROUGH FRIDAY WHILE ON RADIATION.?
     Route: 048
     Dates: start: 202201, end: 20220114

REACTIONS (1)
  - Urosepsis [None]

NARRATIVE: CASE EVENT DATE: 20220114
